FAERS Safety Report 4920071-3 (Version None)
Quarter: 2006Q1

REPORT INFORMATION
  Report Type: 
  Country: None (occurrence: None)
  Receive Date: 20060217
  Receipt Date: 20060207
  Transmission Date: 20060701
  Serious: Yes (Other)
  Sender: FDA-Public Use
  Company Number: 2006019868

PATIENT
  Sex: Male
  Weight: 79.3795 kg

DRUGS (13)
  1. LIPITOR [Suspect]
     Indication: BLOOD CHOLESTEROL INCREASED
     Dosage: 40 MG (40 MG, 1 IN 1 D)
     Dates: start: 20040101
  2. METHOTREXATE [Concomitant]
  3. SULFASALAZINE [Concomitant]
  4. ATENOLOL [Concomitant]
  5. NORVASC [Concomitant]
  6. NITRO PATCH (GLYCERYL TRINITRATE) [Concomitant]
  7. ASPIRIN [Concomitant]
  8. CALCIUM MAGNESIUM ZINC (CALCIUM, MAGNESIUM, ZINC) [Concomitant]
  9. CO-Q-10 (UBIDECARENONE) [Concomitant]
  10. VITAMINE B COMPLEX (CALCIUM PANTOTHENATE, NICOTINAMIDE, PYRIDOXINE HYD [Concomitant]
  11. PRILOSEC [Concomitant]
  12. FISH OIL (FISH OIL) [Concomitant]
  13. FOLIC ACID [Concomitant]

REACTIONS (4)
  - BLOOD CREATININE INCREASED [None]
  - BLOOD UREA NITROGEN/CREATININE RATIO INCREASED [None]
  - CORONARY ARTERY OCCLUSION [None]
  - MYALGIA [None]
